FAERS Safety Report 20222267 (Version 1)
Quarter: 2021Q4

REPORT INFORMATION
  Report Type: Spontaneous
  Country: US (occurrence: None)
  Receive Date: 20211223
  Receipt Date: 20211223
  Transmission Date: 20220303
  Serious: Yes (Hospitalization)
  Sender: FDA-Public Use
  Company Number: None

PATIENT
  Sex: Female
  Weight: 92 kg

DRUGS (3)
  1. CARBOPLATIN [Suspect]
     Active Substance: CARBOPLATIN
     Dates: end: 20211124
  2. DIFLUCAN FORTE [Concomitant]
  3. RESYL PLUS DROPS [Concomitant]

REACTIONS (3)
  - COVID-19 pneumonia [None]
  - Respiratory failure [None]
  - Lung opacity [None]

NARRATIVE: CASE EVENT DATE: 20211210
